FAERS Safety Report 24525529 (Version 1)
Quarter: 2024Q4

REPORT INFORMATION
  Report Type: Spontaneous
  Country: DE (occurrence: DE)
  Receive Date: 20241020
  Receipt Date: 20241020
  Transmission Date: 20250114
  Serious: Yes (Other)
  Sender: AUROBINDO
  Company Number: DE-ROCHE-10000097602

PATIENT
  Age: 69 Year
  Sex: Male
  Weight: 100 kg

DRUGS (4)
  1. IRINOTECAN [Suspect]
     Active Substance: IRINOTECAN
     Indication: Neoplasm malignant
     Dosage: 188.1 MILLIGRAM, BIWEEKLY
     Route: 042
     Dates: start: 20240117
  2. OXALIPLATIN [Suspect]
     Active Substance: OXALIPLATIN
     Indication: Neoplasm malignant
     Dosage: 88.82 MILLIGRAM, BIWEEKLY
     Route: 042
     Dates: start: 20240117, end: 20240318
  3. LEUCOVORIN SODIUM [Suspect]
     Active Substance: LEUCOVORIN SODIUM
     Indication: Neoplasm malignant
     Dosage: 836 MILLIGRAM, BIWEEKLY
     Route: 042
     Dates: start: 20240117
  4. FLUOROURACIL [Suspect]
     Active Substance: FLUOROURACIL
     Indication: Neoplasm malignant
     Dosage: 2508 MILLIGRAM, ON 18-MAR-2024, HE RECEIVED THE MOST RECENT DOSE OF FLUOROURACIL PRIOR TO AE/SAE.
     Route: 042
     Dates: start: 20240117

REACTIONS (1)
  - Polyneuropathy [Not Recovered/Not Resolved]

NARRATIVE: CASE EVENT DATE: 20240402
